FAERS Safety Report 13354693 (Version 1)
Quarter: 2017Q1

REPORT INFORMATION
  Report Type: Spontaneous
  Country: DK (occurrence: DK)
  Receive Date: 20170321
  Receipt Date: 20170321
  Transmission Date: 20170429
  Serious: Yes (Hospitalization)
  Sender: FDA-Public Use
  Company Number: DK-GLAXOSMITHKLINE-DK2017GSK039036

PATIENT
  Sex: Female

DRUGS (2)
  1. FLIXOTIDE EVOHALER [Concomitant]
     Active Substance: FLUTICASONE PROPIONATE
     Indication: ASTHMA PROPHYLAXIS
     Dosage: 2 DF, BID
  2. VENTOLINE AEROSOL [Suspect]
     Active Substance: ALBUTEROL
     Indication: ASTHMA
     Dosage: UNK

REACTIONS (8)
  - Overdose [Recovered/Resolved]
  - Gait disturbance [Recovered/Resolved]
  - Blood pressure increased [Recovered/Resolved]
  - Malaise [Recovered/Resolved]
  - Tremor [Unknown]
  - Heart rate increased [Recovered/Resolved]
  - Product quality issue [Unknown]
  - Asthenia [Recovered/Resolved]
